FAERS Safety Report 24020603 (Version 2)
Quarter: 2024Q3

REPORT INFORMATION
  Report Type: Spontaneous
  Country: JP (occurrence: None)
  Receive Date: 20240627
  Receipt Date: 20240718
  Transmission Date: 20241017
  Serious: Yes (Hospitalization)
  Sender: ASTRAZENECA
  Company Number: 2024A143687

PATIENT
  Age: 74 Year
  Sex: Male
  Weight: 59 kg

DRUGS (13)
  1. IMFINZI [Suspect]
     Active Substance: DURVALUMAB
     Indication: Non-small cell lung cancer
     Route: 041
     Dates: start: 20240515, end: 20240515
  2. EZETIMIBE [Concomitant]
     Active Substance: EZETIMIBE
     Route: 048
  3. CARVEDILOL [Concomitant]
     Active Substance: CARVEDILOL
     Route: 048
  4. FENOFIBRATE [Concomitant]
     Active Substance: FENOFIBRATE
     Route: 048
  5. ESOMEPRAZOLE [Concomitant]
     Active Substance: ESOMEPRAZOLE
     Route: 048
  6. CLOPIDOGREL [Concomitant]
     Active Substance: CLOPIDOGREL BISULFATE
     Route: 048
  7. AMLODIPINE BESYLATE\IRBESARTAN [Concomitant]
     Active Substance: AMLODIPINE BESYLATE\IRBESARTAN
     Dosage: DOSE UNKNOWN
     Route: 048
  8. TENELIGLIPTIN [Concomitant]
     Active Substance: TENELIGLIPTIN
     Route: 048
  9. NIFEDIPINE [Concomitant]
     Active Substance: NIFEDIPINE
     Route: 048
  10. ELOBIXIBAT [Concomitant]
     Active Substance: ELOBIXIBAT
     Route: 048
  11. MAGNESIUM OXIDE [Concomitant]
     Active Substance: MAGNESIUM OXIDE
     Route: 048
  12. NAFTOPIDIL [Concomitant]
     Active Substance: NAFTOPIDIL
     Route: 048
  13. VIBEGRON [Concomitant]
     Active Substance: VIBEGRON
     Route: 048

REACTIONS (1)
  - Immune-mediated hepatic disorder [Recovering/Resolving]

NARRATIVE: CASE EVENT DATE: 20240522
